FAERS Safety Report 4458194-8 (Version None)
Quarter: 2004Q3

REPORT INFORMATION
  Report Type: 
  Country: None (occurrence: None)
  Receive Date: 20040917
  Receipt Date: 20040323
  Transmission Date: 20050211
  Serious: Yes (Other)
  Sender: FDA-Public Use
  Company Number: US-JNJFOC-20040305732

PATIENT
  Age: 38 Year
  Sex: Female
  Weight: 56.6996 kg

DRUGS (3)
  1. TOPAMAX [Suspect]
     Indication: MIGRAINE
     Dosage: 50 MG, IN 1 DAY, ORAL; 25 MG, IN 1 DAY, ORAL
     Route: 048
     Dates: start: 20020701
  2. OXYCONTIN [Concomitant]
  3. NEURONTIN [Concomitant]

REACTIONS (7)
  - ALOPECIA [None]
  - CONVERSION DISORDER [None]
  - DISTURBANCE IN ATTENTION [None]
  - DYSPHEMIA [None]
  - MUSCLE CONTRACTIONS INVOLUNTARY [None]
  - MUSCLE TWITCHING [None]
  - VITAMIN D DEFICIENCY [None]
